FAERS Safety Report 15009757 (Version 1)
Quarter: 2018Q2

REPORT INFORMATION
  Report Type: Spontaneous
  Country: US (occurrence: US)
  Receive Date: 20180527
  Receipt Date: 20180527
  Transmission Date: 20180711
  Serious: No
  Sender: FDA-Public Use
  Company Number: None

PATIENT
  Age: 40 Year
  Sex: Female
  Weight: 56.25 kg

DRUGS (7)
  1. SHEATH BUTTER [Concomitant]
  2. TRIAMCINOLONE [Suspect]
     Active Substance: TRIAMCINOLONE
     Indication: ICHTHYOSIS
     Dosage: ?          QUANTITY:16 OUNCE(S);?
     Route: 061
     Dates: start: 20180320, end: 20180403
  3. TRIAMCINOLONE [Suspect]
     Active Substance: TRIAMCINOLONE
     Indication: ECZEMA
     Dosage: ?          QUANTITY:16 OUNCE(S);?
     Route: 061
     Dates: start: 20180320, end: 20180403
  4. BEESWAX [Concomitant]
     Active Substance: YELLOW WAX
  5. HEMP OIL [Concomitant]
     Active Substance: CANNABIS SATIVA SEED OIL
  6. AVOCADO OIL [Concomitant]
     Active Substance: AVOCADO OIL
  7. COCONUT OIL [Concomitant]
     Active Substance: COCONUT OIL

REACTIONS (8)
  - Erythema [None]
  - Pruritus [None]
  - Pain of skin [None]
  - Steroid withdrawal syndrome [None]
  - Skin sensitisation [None]
  - Drug ineffective [None]
  - Skin tightness [None]
  - Skin discolouration [None]

NARRATIVE: CASE EVENT DATE: 20180402
